FAERS Safety Report 5062025-5 (Version None)
Quarter: 2006Q3

REPORT INFORMATION
  Report Type: 
  Country: None (occurrence: None)
  Receive Date: 20060720
  Receipt Date: 20060720
  Transmission Date: 20061208
  Serious: Yes (Other)
  Sender: FDA-Public Use
  Company Number: None

PATIENT
  Age: 46 Year
  Sex: Female
  Weight: 56.6996 kg

DRUGS (4)
  1. TYLENOL PM GEL TABS [Suspect]
     Indication: INSOMNIA
     Dosage: 2 TABS 1X
     Dates: start: 20060501
  2. TYLENOL PM GEL TABS [Suspect]
     Indication: MYALGIA
     Dosage: 2 TABS 1X
     Dates: start: 20060501
  3. TYLENOL PM GEL TABS [Suspect]
     Indication: INSOMNIA
     Dosage: 2 TABS 1X
     Dates: start: 20060701
  4. TYLENOL PM GEL TABS [Suspect]
     Indication: MYALGIA
     Dosage: 2 TABS 1X
     Dates: start: 20060701

REACTIONS (1)
  - DRUG INEFFECTIVE [None]
